FAERS Safety Report 9917909 (Version 2)
Quarter: 2014Q1

REPORT INFORMATION
  Report Type: Report from Study
  Country: FR (occurrence: FR)
  Receive Date: 20140222
  Receipt Date: 20140314
  Transmission Date: 20141002
  Serious: No
  Sender: FDA-Public Use
  Company Number: FR-ROCHE-1348835

PATIENT
  Age: 73 Year
  Sex: Male

DRUGS (5)
  1. ZELBORAF [Suspect]
     Indication: PRODUCT USED FOR UNKNOWN INDICATION
     Route: 065
     Dates: start: 20140123, end: 20140128
  2. TAHOR [Concomitant]
     Indication: BLOOD CHOLESTEROL
     Dosage: STARTED BEFORE 2008 ,ONGOING TREATMENT
     Route: 048
  3. METFORMIN [Concomitant]
     Indication: DIABETES MELLITUS
     Dosage: STARTED BEFORE 2008, ONGOING TREATMENT
     Route: 048
  4. PLAVIX [Concomitant]
     Route: 048
     Dates: start: 200907
  5. LASILIX [Concomitant]
     Indication: POLYURIA
     Route: 048
     Dates: start: 201303

REACTIONS (2)
  - Tachycardia [Recovered/Resolved]
  - Off label use [Unknown]
